FAERS Safety Report 8392704-3 (Version None)
Quarter: 2012Q2

REPORT INFORMATION
  Report Type: 
  Country: None (occurrence: None)
  Receive Date: 20120525
  Receipt Date: 20120525
  Transmission Date: 20120825
  Serious: Yes (Hospitalization)
  Sender: FDA-Public Use
  Company Number: None

PATIENT
  Age: 76 Year
  Sex: Female
  Weight: 55.7924 kg

DRUGS (1)
  1. BENZONATATE [Suspect]
     Indication: BRONCHITIS
     Dosage: 1 CAPSULE EVERY 8 HOURS 20 PILLS
     Dates: start: 20111130

REACTIONS (3)
  - SKIN HAEMORRHAGE [None]
  - CONTUSION [None]
  - DIZZINESS [None]
